FAERS Safety Report 17430646 (Version 1)
Quarter: 2020Q1

REPORT INFORMATION
  Report Type: Spontaneous
  Country: US (occurrence: US)
  Receive Date: 20200203
  Receipt Date: 20200203
  Transmission Date: 20200409
  Serious: Yes (Hospitalization)
  Sender: FDA-Public Use
  Company Number: None

PATIENT
  Age: 61 Year
  Sex: Female
  Weight: 45.36 kg

DRUGS (11)
  1. FERROUS SULFATE. [Concomitant]
     Active Substance: FERROUS SULFATE
  2. ONDANSETRON [Concomitant]
     Active Substance: ONDANSETRON
  3. PANTOPRAZOLE [Concomitant]
     Active Substance: PANTOPRAZOLE
  4. STELARA [Suspect]
     Active Substance: USTEKINUMAB
  5. PHYTONADIONE. [Concomitant]
     Active Substance: PHYTONADIONE
  6. CHOLECALCIFEROL [Concomitant]
     Active Substance: CHOLECALCIFEROL
  7. COPPER GLUCONATE [Concomitant]
     Active Substance: COPPER GLUCONATE
  8. STELARA [Concomitant]
     Active Substance: USTEKINUMAB
     Dosage: ?          OTHER FREQUENCY:Q8WEEKS;?
  9. HYDROXYZINE HCL [Concomitant]
     Active Substance: HYDROXYZINE HYDROCHLORIDE
  10. MULTIVITAMIN [Concomitant]
     Active Substance: VITAMINS
  11. VITAMIN D2 [Concomitant]
     Active Substance: ERGOCALCIFEROL

REACTIONS (5)
  - Haemorrhoids [None]
  - Anaemia [None]
  - Iron deficiency [None]
  - Dizziness [None]
  - Fatigue [None]

NARRATIVE: CASE EVENT DATE: 20191016
